FAERS Safety Report 5634565-9 (Version None)
Quarter: 2008Q1

REPORT INFORMATION
  Report Type: 
  Country: None (occurrence: None)
  Receive Date: 20080222
  Receipt Date: 20080213
  Transmission Date: 20080703
  Serious: Yes (Hospitalization)
  Sender: FDA-Public Use
  Company Number: PHHO2008CA02413

PATIENT
  Age: 68 Year
  Sex: Male
  Weight: 105.5 kg

DRUGS (2)
  1. RAD [Suspect]
     Indication: HEART TRANSPLANT
     Dosage: 0.75 MG, BID
     Route: 048
     Dates: start: 20071206, end: 20080129
  2. NEORAL [Suspect]
     Indication: HEART TRANSPLANT
     Dosage: 275 MG DAILY
     Route: 048
     Dates: start: 20071206, end: 20080129

REACTIONS (6)
  - DRUG INEFFECTIVE [None]
  - ENTEROCOCCAL INFECTION [None]
  - PERICARDIAL DRAINAGE [None]
  - PERICARDIAL EFFUSION [None]
  - PLEURAL EFFUSION [None]
  - THORACIC CAVITY DRAINAGE [None]
